FAERS Safety Report 16759595 (Version 4)
Quarter: 2019Q4

REPORT INFORMATION
  Report Type: Spontaneous
  Country: AU (occurrence: AU)
  Receive Date: 20190830
  Receipt Date: 20191002
  Transmission Date: 20200122
  Serious: Yes (Hospitalization)
  Sender: FDA-Public Use
  Company Number: AU-CELGENEUS-AUS-20190808804

PATIENT
  Age: 30 Year
  Sex: Female
  Weight: 100 kg

DRUGS (44)
  1. JURNISTA [Concomitant]
     Active Substance: HYDROMORPHONE HYDROCHLORIDE
     Indication: ABDOMINAL PAIN
     Route: 048
     Dates: start: 20190802
  2. PREGABALIN. [Concomitant]
     Active Substance: PREGABALIN
     Indication: ABDOMINAL PAIN
     Route: 048
     Dates: start: 20190802
  3. SODIUM CHLORIDE. [Concomitant]
     Active Substance: SODIUM CHLORIDE
     Indication: PROPHYLAXIS
     Route: 065
     Dates: start: 20190703
  4. ABRAXANE [Suspect]
     Active Substance: PACLITAXEL
     Route: 041
     Dates: start: 20190703, end: 20190703
  5. OLECLUMAB (MEDI9447) [Concomitant]
     Route: 042
     Dates: start: 20190731, end: 20190731
  6. GEMCITABINE. [Concomitant]
     Active Substance: GEMCITABINE
     Indication: PANCREATIC CARCINOMA METASTATIC
     Route: 041
     Dates: start: 20190528, end: 20190528
  7. GEMCITABINE. [Concomitant]
     Active Substance: GEMCITABINE
     Route: 041
     Dates: start: 20190821, end: 20190821
  8. PARACETAMOL [Concomitant]
     Active Substance: ACETAMINOPHEN
     Indication: ABDOMINAL PAIN
     Dosage: 3 GRAM
     Route: 048
     Dates: start: 20190523
  9. MELATONIN [Concomitant]
     Active Substance: MELATONIN
     Indication: INSOMNIA
     Dosage: 2 MILLIGRAM
     Route: 048
     Dates: start: 20190608
  10. FUROSEMIDE. [Concomitant]
     Active Substance: FUROSEMIDE
     Indication: OEDEMA
     Dosage: 25 MILLIGRAM
     Route: 048
     Dates: start: 20190802
  11. LORATADINE. [Concomitant]
     Active Substance: LORATADINE
     Indication: PRURITUS
     Route: 048
     Dates: start: 20190802
  12. OLECLUMAB (MEDI9447) [Concomitant]
     Indication: PANCREATIC CARCINOMA METASTATIC
     Route: 042
     Dates: start: 20190528, end: 20190528
  13. GEMCITABINE. [Concomitant]
     Active Substance: GEMCITABINE
     Route: 041
     Dates: start: 20190724, end: 20190724
  14. THIAMIN [Concomitant]
     Active Substance: THIAMINE
     Indication: PROPHYLAXIS
     Dosage: 100 MILLIGRAM
     Route: 048
     Dates: start: 201905
  15. THIAMIN [Concomitant]
     Active Substance: THIAMINE
     Indication: VITAMIN B1 DEFICIENCY
  16. DOMPERIDONE [Concomitant]
     Active Substance: DOMPERIDONE
     Indication: NAUSEA
     Dosage: 30 MILLIGRAM
     Route: 048
     Dates: start: 20190611
  17. MACROGOL [Concomitant]
     Active Substance: POLYETHYLENE GLYCOLS
     Indication: PROPHYLAXIS
     Route: 065
     Dates: start: 20190703
  18. ABRAXANE [Suspect]
     Active Substance: PACLITAXEL
     Route: 041
     Dates: start: 20190807, end: 20190807
  19. ABRAXANE [Suspect]
     Active Substance: PACLITAXEL
     Route: 041
     Dates: start: 20190821, end: 20190821
  20. LIDOCAINE. [Concomitant]
     Active Substance: LIDOCAINE
     Indication: PROPHYLAXIS
     Dosage: 2 MONTHS
     Route: 048
     Dates: start: 201906
  21. GEMCITABINE. [Concomitant]
     Active Substance: GEMCITABINE
     Route: 041
     Dates: start: 20190710, end: 20190710
  22. GEMCITABINE. [Concomitant]
     Active Substance: GEMCITABINE
     Route: 041
     Dates: start: 20190731, end: 20190731
  23. LORAZEPAM. [Concomitant]
     Active Substance: LORAZEPAM
     Indication: ANXIETY
     Route: 048
     Dates: start: 20190609
  24. CLONAZEPAM. [Concomitant]
     Active Substance: CLONAZEPAM
     Indication: INSOMNIA
     Route: 048
     Dates: start: 20190627
  25. ABRAXANE [Suspect]
     Active Substance: PACLITAXEL
     Route: 041
     Dates: start: 20190626, end: 20190626
  26. ABRAXANE [Suspect]
     Active Substance: PACLITAXEL
     Route: 041
     Dates: start: 20190710, end: 20190710
  27. GEMCITABINE. [Concomitant]
     Active Substance: GEMCITABINE
     Route: 041
     Dates: start: 20190807, end: 20190807
  28. METFORMIN [Concomitant]
     Active Substance: METFORMIN HYDROCHLORIDE
     Indication: DIABETES MELLITUS
     Dosage: 2000 MILLIGRAM
     Route: 048
     Dates: start: 20190608
  29. HYDROMORPHONE HYDROCHLORIDE. [Concomitant]
     Active Substance: HYDROMORPHONE HYDROCHLORIDE
     Indication: ABDOMINAL PAIN
     Route: 065
     Dates: start: 20190802
  30. ABRAXANE [Suspect]
     Active Substance: PACLITAXEL
     Indication: PANCREATIC CARCINOMA METASTATIC
     Route: 041
     Dates: start: 20190528, end: 20190528
  31. ABRAXANE [Suspect]
     Active Substance: PACLITAXEL
     Route: 041
     Dates: start: 20190731, end: 20190731
  32. OLECLUMAB (MEDI9447) [Concomitant]
     Route: 042
     Dates: start: 20190724, end: 20190724
  33. GEMCITABINE. [Concomitant]
     Active Substance: GEMCITABINE
     Route: 041
     Dates: start: 20190626, end: 20190626
  34. GEMCITABINE. [Concomitant]
     Active Substance: GEMCITABINE
     Route: 041
     Dates: start: 20190703, end: 20190703
  35. EMPAGLIFLOZIN [Concomitant]
     Active Substance: EMPAGLIFLOZIN
     Indication: TYPE 2 DIABETES MELLITUS
     Dosage: 2500 MICROGRAM
     Route: 048
     Dates: start: 20190608
  36. CYCLIZINE [Concomitant]
     Active Substance: CYCLIZINE
     Indication: PROPHYLAXIS
     Route: 048
     Dates: start: 20190802
  37. DICLOFENAC [Concomitant]
     Active Substance: DICLOFENAC
     Indication: PAIN
     Route: 061
     Dates: start: 20190731
  38. SODIUM BICARBONATE. [Concomitant]
     Active Substance: SODIUM BICARBONATE
     Indication: PROPHYLAXIS
     Route: 065
     Dates: start: 20190703
  39. ABRAXANE [Suspect]
     Active Substance: PACLITAXEL
     Route: 041
     Dates: start: 20190724, end: 20190724
  40. OLECLUMAB (MEDI9447) [Concomitant]
     Route: 042
     Dates: start: 20190612
  41. OLECLUMAB (MEDI9447) [Concomitant]
     Route: 042
     Dates: start: 20190626
  42. MOVICOL [Concomitant]
     Active Substance: POLYETHYLENE GLYCOL 3350\POTASSIUM CHLORIDE\SODIUM BICARBONATE\SODIUM CHLORIDE
     Indication: PROPHYLAXIS
     Route: 065
     Dates: start: 20190703
  43. CALAMINE [Concomitant]
     Active Substance: CALAMINE\FERRIC OXIDE RED\ZINC OXIDE
     Indication: PRURITUS
     Route: 048
     Dates: start: 20190811
  44. POTASSIUM CHLORIDE. [Concomitant]
     Active Substance: POTASSIUM CHLORIDE
     Indication: PROPHYLAXIS
     Route: 065
     Dates: start: 20190703

REACTIONS (1)
  - Pseudomembranous colitis [Recovering/Resolving]

NARRATIVE: CASE EVENT DATE: 20190813
